FAERS Safety Report 12185126 (Version 5)
Quarter: 2018Q3

REPORT INFORMATION
  Report Type: Report from Study
  Country: US (occurrence: US)
  Receive Date: 20160316
  Receipt Date: 20180817
  Transmission Date: 20181010
  Serious: Yes (Hospitalization, Other)
  Sender: FDA-Public Use
  Company Number: PHEH2016US006334

PATIENT
  Age: 36 Year
  Sex: Female

DRUGS (7)
  1. PREDNISONE. [Concomitant]
     Active Substance: PREDNISONE
     Indication: PRODUCT USED FOR UNKNOWN INDICATION
     Dosage: 20 MG, BID (5 DAYS)
     Route: 065
  2. ILARIS [Suspect]
     Active Substance: CANAKINUMAB
     Indication: RHEUMATOID ARTHRITIS
     Dosage: 150 MG, EVERY 8 WEEKS
     Route: 058
     Dates: start: 20141006
  3. ILARIS [Suspect]
     Active Substance: CANAKINUMAB
     Indication: CRYOPYRIN ASSOCIATED PERIODIC SYNDROME
  4. LEVOFLOXACIN. [Concomitant]
     Active Substance: LEVOFLOXACIN
     Indication: PRODUCT USED FOR UNKNOWN INDICATION
     Dosage: 750 MG, QD (10 DAYS)
     Route: 065
  5. CODEINE [Concomitant]
     Active Substance: CODEINE
     Indication: PRODUCT USED FOR UNKNOWN INDICATION
     Dosage: 5 ML, EVERY 6 HOURS, PRN
     Route: 065
  6. MUCINEX [Concomitant]
     Active Substance: GUAIFENESIN
     Indication: PRODUCT USED FOR UNKNOWN INDICATION
     Dosage: 600 MG, Q12H (5 DAYS)
     Route: 065
  7. PROMETHAZINE [Concomitant]
     Active Substance: PROMETHAZINE\PROMETHAZINE HYDROCHLORIDE
     Indication: PRODUCT USED FOR UNKNOWN INDICATION
     Dosage: 5 ML, EVERY 6 HOURS PRN
     Route: 065

REACTIONS (13)
  - Cough [Unknown]
  - Pulmonary mass [Unknown]
  - Tremor [Unknown]
  - Wheezing [Recovered/Resolved]
  - Urinary incontinence [Unknown]
  - Brucellosis [Unknown]
  - Temporomandibular joint syndrome [Unknown]
  - Pain in jaw [Unknown]
  - Oedema peripheral [Unknown]
  - Dyspnoea [Unknown]
  - Upper respiratory tract infection [Recovered/Resolved]
  - Breath sounds abnormal [Unknown]
  - Pneumonia [Recovered/Resolved]

NARRATIVE: CASE EVENT DATE: 20160228
